FAERS Safety Report 9363951 (Version 1)
Quarter: 2013Q2

REPORT INFORMATION
  Report Type: Spontaneous
  Country: JP (occurrence: None)
  Receive Date: 20130618
  Receipt Date: 20130618
  Transmission Date: 20140414
  Serious: Yes (Other)
  Sender: FDA-Public Use
  Company Number: TCI2013A03357

PATIENT
  Sex: 0

DRUGS (3)
  1. ACTOS [Suspect]
     Indication: DIABETES MELLITUS
     Dosage: (15 MG, 1 D)
     Route: 048
     Dates: start: 2010, end: 2012
  2. DAONIL [Concomitant]
  3. JANUVIA [Concomitant]

REACTIONS (1)
  - Interstitial lung disease [None]
